FAERS Safety Report 9748607 (Version 5)
Quarter: 2014Q2

REPORT INFORMATION
  Report Type: Spontaneous
  Country: US (occurrence: US)
  Receive Date: 20131212
  Receipt Date: 20140610
  Transmission Date: 20141212
  Serious: Yes (Hospitalization, Disabling, Other)
  Sender: FDA-Public Use
  Company Number: US-009507513-1101USA01769

PATIENT
  Sex: Female
  Weight: 80.29 kg

DRUGS (6)
  1. FOSAMAX [Suspect]
     Indication: OSTEOPOROSIS
     Dosage: 10 MG, QD
     Route: 048
     Dates: end: 200703
  2. FOSAMAX [Suspect]
     Indication: MENOPAUSE
     Dosage: 10 MG, QD
     Route: 048
     Dates: start: 20030711, end: 20040913
  3. FOSAMAX [Suspect]
     Dosage: 70 MG, QW
     Route: 048
     Dates: end: 200703
  4. FOSAMAX [Suspect]
     Dosage: UNK
     Route: 048
     Dates: end: 200701
  5. FOSAMAX [Suspect]
     Dosage: 5 MG, DAILY
     Route: 048
     Dates: start: 19981201
  6. ALENDRONATE SODIUM [Suspect]
     Dosage: 70 MG, QW
     Route: 048
     Dates: start: 20110601

REACTIONS (54)
  - Intramedullary rod insertion [Unknown]
  - Fall [Unknown]
  - Knee arthroplasty [Unknown]
  - Haemorrhagic anaemia [Unknown]
  - Brain stem stroke [Unknown]
  - Thrombosis [Unknown]
  - Deafness unilateral [Not Recovered/Not Resolved]
  - Femur fracture [Recovered/Resolved]
  - Herpes zoster [Unknown]
  - Vulvovaginal pruritus [Unknown]
  - Fatigue [Unknown]
  - Coagulopathy [Not Recovered/Not Resolved]
  - Connective tissue disorder [Unknown]
  - Osteoarthritis [Not Recovered/Not Resolved]
  - Insomnia [Unknown]
  - Haematuria [Unknown]
  - Cataract [Unknown]
  - Fall [Unknown]
  - Gait disturbance [Unknown]
  - Paraesthesia [Unknown]
  - Syncope [Unknown]
  - Carotid artery disease [Unknown]
  - Spondylolisthesis [Unknown]
  - Spinal osteoarthritis [Unknown]
  - Chondrocalcinosis [Unknown]
  - Retinal disorder [Unknown]
  - Mass [Unknown]
  - Blood triglycerides increased [Unknown]
  - Osteoarthritis [Unknown]
  - Bronchitis [Unknown]
  - Osteopenia [Unknown]
  - Essential hypertension [Unknown]
  - Type V hyperlipidaemia [Unknown]
  - Viral infection [Unknown]
  - Heart rate irregular [Unknown]
  - Vaginal discharge [Unknown]
  - Upper respiratory tract infection [Unknown]
  - Bronchitis [Unknown]
  - Gastrooesophageal reflux disease [Unknown]
  - Gastritis [Unknown]
  - Nausea [Unknown]
  - Pain in extremity [Unknown]
  - Joint swelling [Unknown]
  - Bone pain [Unknown]
  - Oedema peripheral [Recovering/Resolving]
  - Steroid therapy [Unknown]
  - Bursitis [Unknown]
  - Arthroscopy [Unknown]
  - Meniscus removal [Unknown]
  - Chondroplasty [Unknown]
  - Lower limb fracture [Recovering/Resolving]
  - Patellofemoral pain syndrome [Recovering/Resolving]
  - Synovectomy [Unknown]
  - Palpitations [Unknown]
